FAERS Safety Report 6506739-6 (Version None)
Quarter: 2009Q4

REPORT INFORMATION
  Report Type: 
  Country: None (occurrence: None)
  Receive Date: 20091221
  Receipt Date: 20091211
  Transmission Date: 20100525
  Serious: Yes (Hospitalization)
  Sender: FDA-Public Use
  Company Number: CL-ROCHE-674656

PATIENT
  Sex: Female
  Weight: 64.5 kg

DRUGS (6)
  1. INTERFERON ALFA [Suspect]
     Indication: RENAL CELL CARCINOMA
     Dosage: DOSE: 6MU
     Route: 058
     Dates: start: 20091027, end: 20091207
  2. BEVACIZUMAB [Suspect]
     Indication: RENAL CELL CARCINOMA
     Route: 042
     Dates: start: 20091027, end: 20091207
  3. METFORMIN HCL [Concomitant]
     Indication: INSULIN RESISTANCE
     Dates: start: 20090101
  4. PROPRANOLOL [Concomitant]
     Indication: HYPERTENSION
     Dates: start: 20030101
  5. LEVODOPA [Concomitant]
     Indication: PARKINSON'S DISEASE
     Dates: start: 20081001
  6. LEVOTHYROXINE SODIUM [Concomitant]
     Indication: HYPOTHYROIDISM
     Dates: start: 20070101

REACTIONS (1)
  - DEHYDRATION [None]
